FAERS Safety Report 25780074 (Version 1)
Quarter: 2025Q3

REPORT INFORMATION
  Report Type: Spontaneous
  Country: US (occurrence: None)
  Receive Date: 20250908
  Receipt Date: 20250908
  Transmission Date: 20251021
  Serious: Yes (Other)
  Sender: FDA-CTU
  Company Number: None

PATIENT
  Sex: Male

DRUGS (3)
  1. ARGININE\CYANOCOBALAMIN\PYRIDOXINE\TADALAFIL\ZINC [Suspect]
     Active Substance: ARGININE\CYANOCOBALAMIN\PYRIDOXINE\TADALAFIL\ZINC
     Indication: Erectile dysfunction
     Dosage: 8.5 MG DAILY ORAL
     Route: 048
     Dates: start: 20250903, end: 20250906
  2. VITAMIN B6 (PYRIDOXINE HCL) [Concomitant]
  3. L-ARGININE 120MG ZIN SSULFATE 30MG [Concomitant]

REACTIONS (1)
  - Myalgia [None]
